FAERS Safety Report 5145886-0 (Version None)
Quarter: 2006Q4

REPORT INFORMATION
  Report Type: 
  Country: None (occurrence: None)
  Receive Date: 20061108
  Receipt Date: 20061030
  Transmission Date: 20070319
  Serious: Yes (Hospitalization)
  Sender: FDA-Public Use
  Company Number: CA-AMGEN-US198595

PATIENT
  Sex: Male

DRUGS (13)
  1. PANITUMUMAB [Suspect]
     Indication: COLORECTAL CANCER
     Route: 042
  2. OXALIPLATIN [Concomitant]
     Route: 042
  3. FLUOROURACIL [Concomitant]
     Route: 042
  4. LEUCOVORIN CALCIUM [Concomitant]
     Route: 042
  5. ASPIRIN [Concomitant]
     Route: 065
  6. LASIX [Concomitant]
     Route: 065
  7. ALTACE [Concomitant]
     Route: 065
  8. METOPROLOL TARTRATE [Concomitant]
     Route: 065
  9. AVODART [Concomitant]
     Route: 065
  10. PLAVIX [Concomitant]
     Route: 065
  11. NITROGLYCERIN [Concomitant]
     Route: 065
  12. LIPITOR [Concomitant]
     Route: 065
  13. IMODIUM [Concomitant]
     Route: 065

REACTIONS (4)
  - DIARRHOEA [None]
  - HYPOTENSION [None]
  - HYPOVOLAEMIA [None]
  - SYNCOPE [None]
